FAERS Safety Report 7701876-2 (Version None)
Quarter: 2011Q3

REPORT INFORMATION
  Report Type: 
  Country: None (occurrence: None)
  Receive Date: 20110822
  Receipt Date: 20110818
  Transmission Date: 20111222
  Serious: No
  Sender: FDA-Public Use
  Company Number: US-PFIZER INC-2011191846

PATIENT
  Sex: Female

DRUGS (1)
  1. GEODON [Suspect]
     Dosage: 20MG AT 6:30AM, 20MG AT NOON, 40MG AT 5PM AND 160MG AT DINNER.

REACTIONS (3)
  - GASTRITIS [None]
  - NAUSEA [None]
  - DRUG WITHDRAWAL SYNDROME [None]
